FAERS Safety Report 7571875-2 (Version None)
Quarter: 2011Q2

REPORT INFORMATION
  Report Type: 
  Country: None (occurrence: None)
  Receive Date: 20110624
  Receipt Date: 20100601
  Transmission Date: 20111010
  Serious: No
  Sender: FDA-Public Use
  Company Number: A0862249A

PATIENT
  Age: 58 Year
  Sex: Female

DRUGS (2)
  1. ZYFLO [Concomitant]
  2. VERAMYST [Suspect]
     Dosage: 2SPR AT NIGHT
     Route: 045
     Dates: start: 20080101

REACTIONS (3)
  - COUGH [None]
  - NASAL DISCOMFORT [None]
  - PRODUCT QUALITY ISSUE [None]
